FAERS Safety Report 22303518 (Version 1)
Quarter: 2023Q2

REPORT INFORMATION
  Report Type: Spontaneous
  Country: US (occurrence: US)
  Receive Date: 20230510
  Receipt Date: 20230510
  Transmission Date: 20230722
  Serious: Yes (Death, Other)
  Sender: FDA-Public Use
  Company Number: US-AMGEN-USASP2023077307

PATIENT
  Age: 64 Year
  Sex: Male

DRUGS (3)
  1. BEVACIZUMAB [Suspect]
     Active Substance: BEVACIZUMAB
     Indication: Glioblastoma
     Dosage: 7.5 MILLIGRAM PER KILOGRAM, Q3WK
     Route: 065
  2. TEMOZOLOMIDE [Concomitant]
     Active Substance: TEMOZOLOMIDE
     Indication: Glioblastoma
     Dosage: ONE CYCLE AT 150 MILLIGRAM PER SQUARE METRE
  3. TEMOZOLOMIDE [Concomitant]
     Active Substance: TEMOZOLOMIDE
     Dosage: 200 MILLIGRAM PER SQUARE METRE (FIRST FIVE DAYS OF 28-DAY CYCLE)

REACTIONS (7)
  - Death [Fatal]
  - Cerebral haemorrhage [Unknown]
  - Glioblastoma [Not Recovered/Not Resolved]
  - Urosepsis [Unknown]
  - Cerebral small vessel ischaemic disease [Unknown]
  - Mobility decreased [Unknown]
  - Urinary tract infection [Unknown]
